FAERS Safety Report 8337590-2 (Version None)
Quarter: 2012Q2

REPORT INFORMATION
  Report Type: 
  Country: None (occurrence: None)
  Receive Date: 20120504
  Receipt Date: 20120421
  Transmission Date: 20120825
  Serious: Yes (Hospitalization)
  Sender: FDA-Public Use
  Company Number: PHHO2008US01431

PATIENT
  Age: 64 Year
  Sex: Female

DRUGS (9)
  1. DOCETAXEL [Concomitant]
     Indication: BREAST CANCER METASTATIC
     Route: 048
     Dates: start: 20080117
  2. POTASSIUM CHLORIDE [Concomitant]
  3. FOLIC ACID [Concomitant]
  4. LEVOXYL [Concomitant]
  5. CALCIUM [Concomitant]
  6. AFINITOR [Suspect]
     Indication: BREAST CANCER METASTATIC
     Route: 048
     Dates: start: 20080117
  7. ATIVAN [Concomitant]
  8. VITAMIN C [Concomitant]
  9. ALBUTEROL [Concomitant]

REACTIONS (1)
  - FEBRILE NEUTROPENIA [None]
